FAERS Safety Report 8155560-4 (Version None)
Quarter: 2012Q1

REPORT INFORMATION
  Report Type: 
  Country: None (occurrence: None)
  Receive Date: 20120215
  Receipt Date: 20120124
  Transmission Date: 20120608
  Serious: Yes (Life-Threatening, Other)
  Sender: FDA-Public Use
  Company Number: JPI-P-012522

PATIENT
  Age: 45 Year
  Sex: Male

DRUGS (12)
  1. XYREM [Suspect]
     Indication: CATAPLEXY
     Dosage: 4.5 GM (2.25 GM, 2 IN 1 D), ORAL ; 6 GM (3GM, 2 IN 1 D), ORAL  ; 7.5 GM (3.75 GM, 2 IN 1 D), ORAL ;
     Route: 048
     Dates: start: 20100301, end: 20111001
  2. XYREM [Suspect]
     Indication: CATAPLEXY
     Dosage: 4.5 GM (2.25 GM, 2 IN 1 D), ORAL ; 6 GM (3GM, 2 IN 1 D), ORAL  ; 7.5 GM (3.75 GM, 2 IN 1 D), ORAL ;
     Route: 048
     Dates: start: 20070101, end: 20070201
  3. XYREM [Suspect]
     Indication: CATAPLEXY
     Dosage: 4.5 GM (2.25 GM, 2 IN 1 D), ORAL ; 6 GM (3GM, 2 IN 1 D), ORAL  ; 7.5 GM (3.75 GM, 2 IN 1 D), ORAL ;
     Route: 048
     Dates: start: 20070201, end: 20070901
  4. XYREM [Suspect]
     Indication: CATAPLEXY
     Dosage: 4.5 GM (2.25 GM, 2 IN 1 D), ORAL ; 6 GM (3GM, 2 IN 1 D), ORAL  ; 7.5 GM (3.75 GM, 2 IN 1 D), ORAL ;
     Route: 048
     Dates: start: 20071001, end: 20091001
  5. XYREM [Suspect]
     Indication: CATAPLEXY
     Dosage: 4.5 GM (2.25 GM, 2 IN 1 D), ORAL ; 6 GM (3GM, 2 IN 1 D), ORAL  ; 7.5 GM (3.75 GM, 2 IN 1 D), ORAL ;
     Route: 048
     Dates: start: 20091001, end: 20100301
  6. XYREM [Suspect]
     Indication: CATAPLEXY
     Dosage: 4.5 GM (2.25 GM, 2 IN 1 D), ORAL ; 6 GM (3GM, 2 IN 1 D), ORAL  ; 7.5 GM (3.75 GM, 2 IN 1 D), ORAL ;
     Route: 048
     Dates: start: 20111012
  7. XYREM [Suspect]
     Indication: CATAPLEXY
     Dosage: 4.5 GM (2.25 GM, 2 IN 1 D), ORAL ; 6 GM (3GM, 2 IN 1 D), ORAL  ; 7.5 GM (3.75 GM, 2 IN 1 D), ORAL ;
     Route: 048
     Dates: start: 20070901, end: 20071001
  8. METHYLPHENIDATE [Concomitant]
  9. CLONAZEPAM [Concomitant]
  10. CLOMIPRAMINE HYDROCHLORIDE [Suspect]
     Indication: NARCOLEPSY
     Dosage: 100 MG (25 MG, 4 IN 1 D), ORAL
     Route: 048
     Dates: end: 20070101
  11. CLOMIPRAMINE HYDROCHLORIDE [Suspect]
     Indication: CATAPLEXY
     Dosage: 100 MG (25 MG, 4 IN 1 D), ORAL
     Route: 048
     Dates: end: 20070101
  12. SELEGILINE [Concomitant]

REACTIONS (2)
  - ENURESIS [None]
  - MYOCARDIAL INFARCTION [None]
